FAERS Safety Report 15511514 (Version 1)
Quarter: 2018Q4

REPORT INFORMATION
  Report Type: Report from Study
  Country: US (occurrence: US)
  Receive Date: 20181016
  Receipt Date: 20181016
  Transmission Date: 20190205
  Serious: No
  Sender: FDA-Public Use
  Company Number: US-AMGEN-USASL2018075227

PATIENT
  Sex: Female

DRUGS (1)
  1. NEULASTA [Suspect]
     Active Substance: PEGFILGRASTIM
     Indication: PRODUCT USED FOR UNKNOWN INDICATION
     Dosage: UNK UNK, Q3WK (24 HOURS AFTER STRONG CHEMOTHERAPY)
     Route: 065

REACTIONS (8)
  - Myalgia [Unknown]
  - Malaise [Unknown]
  - Pain in extremity [Unknown]
  - Injection site pain [Unknown]
  - Influenza like illness [Unknown]
  - White blood cell count decreased [Unknown]
  - Disturbance in attention [Unknown]
  - Nervous system disorder [Not Recovered/Not Resolved]
